FAERS Safety Report 11238520 (Version 1)
Quarter: 2015Q3

REPORT INFORMATION
  Report Type: Spontaneous
  Country: GB (occurrence: GB)
  Receive Date: 20150705
  Receipt Date: 20150705
  Transmission Date: 20151125
  Serious: Yes (Other)
  Sender: FDA-Public Use
  Company Number: GB-009507513-1507GBR001255

PATIENT
  Age: 78 Year
  Sex: Male
  Weight: 63.5 kg

DRUGS (3)
  1. SINEMET [Suspect]
     Active Substance: CARBIDOPA\LEVODOPA
     Dosage: UNK
  2. TRIMETHOPRIM. [Interacting]
     Active Substance: TRIMETHOPRIM
     Indication: URINARY TRACT INFECTION
     Dosage: 200MG, QD
     Route: 048
     Dates: start: 20150619, end: 20150621
  3. RIVASTIGMINE. [Concomitant]
     Active Substance: RIVASTIGMINE

REACTIONS (1)
  - Inhibitory drug interaction [Not Recovered/Not Resolved]
